FAERS Safety Report 9122368 (Version 1)
Quarter: 2013Q1

REPORT INFORMATION
  Report Type: Report from Study
  Country: CA (occurrence: CA)
  Receive Date: 20130114
  Receipt Date: 20130114
  Transmission Date: 20140127
  Serious: Yes (Other)
  Sender: FDA-Public Use
  Company Number: CA-JNJFOC-20130102699

PATIENT
  Sex: Male
  Weight: 59.2 kg

DRUGS (7)
  1. REMICADE [Suspect]
     Indication: CROHN^S DISEASE
     Dosage: 74 INFUSIONS TO DATE
     Route: 042
  2. SALOFALK [Concomitant]
     Route: 065
  3. PENTASA [Concomitant]
     Route: 065
  4. PHOSPHATES [Concomitant]
     Route: 065
  5. PANTOLOC [Concomitant]
     Route: 065
  6. ACTONEL [Concomitant]
     Route: 065
  7. ALL OTHER THERAPEUTIC PRODUCTS [Concomitant]
     Route: 065

REACTIONS (1)
  - Skin cancer [Not Recovered/Not Resolved]
